FAERS Safety Report 23222666 (Version 1)
Quarter: 2023Q4

REPORT INFORMATION
  Report Type: Spontaneous
  Country: FR (occurrence: FR)
  Receive Date: 20231123
  Receipt Date: 20231123
  Transmission Date: 20240110
  Serious: Yes (Other)
  Sender: FDA-Public Use
  Company Number: None

PATIENT
  Age: 37 Year
  Sex: Female
  Weight: 72 kg

DRUGS (1)
  1. NEXPLANON [Suspect]
     Active Substance: ETONOGESTREL
     Indication: Contraception
     Dosage: 1 IMPLANT EVERY 3 YEARS
     Route: 058
     Dates: start: 20230915

REACTIONS (3)
  - Device dislocation [Recovering/Resolving]
  - Drug ineffective [Recovering/Resolving]
  - Pregnancy [Recovered/Resolved]

NARRATIVE: CASE EVENT DATE: 20230901
